FAERS Safety Report 18559215 (Version 1)
Quarter: 2020Q4

REPORT INFORMATION
  Report Type: Spontaneous
  Country: US (occurrence: US)
  Receive Date: 20201130
  Receipt Date: 20201130
  Transmission Date: 20210114
  Serious: Yes (Death, Other)
  Sender: FDA-Public Use
  Company Number: US-009507513-2011USA016644

PATIENT
  Age: 80 Year
  Sex: Female
  Weight: 80.73 kg

DRUGS (12)
  1. COZAAR [Suspect]
     Active Substance: LOSARTAN POTASSIUM
     Indication: HYPERTENSION
     Dosage: 100 MG, QD
     Route: 048
     Dates: start: 2006
  2. PROTONIX [Concomitant]
     Active Substance: PANTOPRAZOLE SODIUM
     Dosage: UNK, UNK
     Route: 065
  3. PRINIVIL [Suspect]
     Active Substance: LISINOPRIL
     Indication: HYPERTENSION
     Dosage: 60 MG, QD
     Route: 048
     Dates: start: 2005
  4. TEKTURNA [Suspect]
     Active Substance: ALISKIREN HEMIFUMARATE
     Indication: DIABETES MELLITUS
  5. INSULIN [Concomitant]
     Active Substance: INSULIN NOS
     Dosage: UNK, UNK
     Route: 065
  6. PRINIVIL [Suspect]
     Active Substance: LISINOPRIL
     Indication: DIABETES MELLITUS
  7. TEKTURNA [Suspect]
     Active Substance: ALISKIREN HEMIFUMARATE
     Indication: DIABETIC NEPHROPATHY
  8. CLONIDINE. [Concomitant]
     Active Substance: CLONIDINE
     Dosage: UNK, UNK
     Route: 065
  9. PRINIVIL [Suspect]
     Active Substance: LISINOPRIL
     Indication: DIABETIC NEPHROPATHY
  10. DIGOXIN. [Concomitant]
     Active Substance: DIGOXIN
     Dosage: UNK, UNK
     Route: 065
  11. TEKTURNA [Suspect]
     Active Substance: ALISKIREN HEMIFUMARATE
     Indication: HYPERTENSION
     Dosage: 150 MG, QD
     Route: 048
     Dates: start: 2008
  12. LOPID [Concomitant]
     Active Substance: GEMFIBROZIL
     Dosage: UNK, UNK
     Route: 065

REACTIONS (8)
  - Dyspnoea [Fatal]
  - Dysphagia [Fatal]
  - Angioedema [Fatal]
  - Hypotension [Unknown]
  - Cardio-respiratory arrest [Fatal]
  - Odynophagia [Fatal]
  - Pharyngeal swelling [Fatal]
  - Anaphylactic shock [Unknown]

NARRATIVE: CASE EVENT DATE: 20100212
